FAERS Safety Report 6096529-3 (Version None)
Quarter: 2009Q1

REPORT INFORMATION
  Report Type: 
  Country: None (occurrence: None)
  Receive Date: 20090225
  Receipt Date: 20090225
  Transmission Date: 20090719
  Serious: Yes (Disabling, Other)
  Sender: FDA-Public Use
  Company Number: None

PATIENT
  Sex: Male
  Weight: 87.9978 kg

DRUGS (1)
  1. LIALDA [Suspect]
     Indication: CROHN'S DISEASE
     Dosage: 1.2 GM 1 TIME A DAY
     Dates: start: 20070101, end: 20080801

REACTIONS (1)
  - SYSTEMIC LUPUS ERYTHEMATOSUS [None]
